FAERS Safety Report 8936888 (Version 4)
Quarter: 2013Q2

REPORT INFORMATION
  Report Type: Report from Study
  Country: BE (occurrence: BE)
  Receive Date: 20121130
  Receipt Date: 20130507
  Transmission Date: 20140414
  Serious: Yes (Hospitalization)
  Sender: FDA-Public Use
  Company Number: BE-AMGEN-BELCT2012075836

PATIENT
  Age: 62 Year
  Sex: Female
  Weight: 61 kg

DRUGS (15)
  1. DENOSUMAB [Suspect]
     Indication: OSTEOPOROSIS
     Dosage: 60 MG, Q6MO
     Dates: start: 20120822, end: 20120822
  2. MEDROL [Concomitant]
     Dosage: 8 MG, UNK
     Route: 048
     Dates: start: 20120322
  3. DICLOFENAC [Concomitant]
     Dosage: 75 MG, UNK
     Route: 048
     Dates: start: 20120801, end: 20121118
  4. NESTROLAN [Concomitant]
     Dosage: 100 MG, UNK
     Route: 048
     Dates: start: 20120822
  5. STEOVIT D3 [Concomitant]
     Dosage: 1000 MG, UNK
     Route: 048
     Dates: start: 20120822, end: 20121118
  6. DAFALGAN [Concomitant]
     Dosage: 1 G, UNK
     Route: 048
     Dates: start: 20060515
  7. D-CURE [Concomitant]
     Dosage: UNK
     Route: 048
     Dates: start: 20101214
  8. BEFACT [Concomitant]
     Dosage: UNK
     Route: 048
     Dates: start: 20120322
  9. DUROGESIC [Concomitant]
     Dosage: UNK
     Route: 062
  10. ASAFLOW [Concomitant]
     Dosage: 80 MG, UNK
     Route: 048
     Dates: start: 19920615
  11. CORUNO [Concomitant]
     Dosage: 16 MG, UNK
     Route: 048
     Dates: start: 19920615
  12. LEDERTREXATE [Concomitant]
     Dosage: 15 MG, UNK
     Route: 048
     Dates: start: 20120418
  13. FOLIC ACID [Concomitant]
     Dosage: 5 MG, UNK
     Route: 048
     Dates: start: 20120419
  14. LORMETAZEPAM [Concomitant]
     Dosage: 2 MG, UNK
     Route: 048
  15. MYOLASTAN [Concomitant]
     Dosage: 50 MG, UNK
     Route: 048

REACTIONS (1)
  - Erosive oesophagitis [Recovered/Resolved]
